FAERS Safety Report 8022337-X (Version None)
Quarter: 2012Q1

REPORT INFORMATION
  Report Type: 
  Country: None (occurrence: None)
  Receive Date: 20120104
  Receipt Date: 20111229
  Transmission Date: 20120608
  Serious: Yes (Hospitalization, Other)
  Sender: FDA-Public Use
  Company Number: PHHY2010NL53405

PATIENT
  Sex: Male

DRUGS (10)
  1. ZOMETA [Suspect]
     Dosage: 4 MG, PER 5 ML ONCE EVERY 28 DAYS
     Dates: start: 20100715
  2. ZOMETA [Suspect]
     Dosage: 4 MG, PER 5 ML ONCE EVERY 28 DAYS
     Dates: start: 20111201
  3. ZOMETA [Suspect]
     Dosage: 4 MG, PER 5 ML ONCE EVERY 28 DAYS
     Dates: start: 20100812
  4. LIPITOR [Concomitant]
     Dosage: UNK UKN, UNK
  5. TAMSULOSIN HCL [Concomitant]
  6. ZOMETA [Suspect]
     Dosage: 4 MG, PER 5 ML ONCE EVERY 28 DAYS
     Dates: start: 20101202
  7. ZOMETA [Suspect]
     Dosage: 4 MG, PER 5 ML ONCE EVERY 28 DAYS
     Dates: start: 20111229
  8. ASCAL [Concomitant]
     Dosage: UNK UKN, UNK
  9. ZOMETA [Suspect]
     Indication: METASTASES TO BONE
     Dosage: 4 MG, PER 5 ML ONCE EVERY 28 DAYS
     Dates: start: 20100325
  10. ZOMETA [Suspect]
     Dosage: 4 MG, PER 5 ML ONCE EVERY 28 DAYS
     Dates: start: 20101104

REACTIONS (8)
  - RENAL IMPAIRMENT [None]
  - PYREXIA [None]
  - URINARY TRACT INFECTION [None]
  - DECREASED APPETITE [None]
  - FATIGUE [None]
  - DIZZINESS [None]
  - PAIN [None]
  - HYPOTENSION [None]
